FAERS Safety Report 21543907 (Version 1)
Quarter: 2022Q4

REPORT INFORMATION
  Report Type: Spontaneous
  Country: US (occurrence: None)
  Receive Date: 20221101
  Receipt Date: 20221101
  Transmission Date: 20230113
  Serious: Yes (Death)
  Sender: FDA-Public Use
  Company Number: None

PATIENT
  Age: 69 Year
  Sex: Male
  Weight: 66.09 kg

DRUGS (14)
  1. LENALIDOMIDE [Suspect]
     Active Substance: LENALIDOMIDE
     Indication: Plasma cell myeloma
     Dosage: OTHER FREQUENCY : 21D ON 7D OFF;?
     Route: 048
     Dates: start: 202209
  2. BICALUTAMIDE [Concomitant]
  3. FERROUS SULFATE [Concomitant]
  4. FISH OIL [Concomitant]
  5. FOLIC ACID [Concomitant]
  6. NORCO [Concomitant]
  7. LACTULOSE [Concomitant]
  8. LASIX [Concomitant]
  9. LEVOTHYROXINE [Concomitant]
  10. MEDROL [Concomitant]
     Active Substance: METHYLPREDNISOLONE
  11. NIACIN [Concomitant]
  12. TRAMADOL [Concomitant]
  13. VITAMIN B12 [Concomitant]
  14. VITAMIN C [Concomitant]

REACTIONS (1)
  - Death [None]
